FAERS Safety Report 8564253-0 (Version None)
Quarter: 2012Q3

REPORT INFORMATION
  Report Type: 
  Country: None (occurrence: None)
  Receive Date: 20120803
  Receipt Date: 20120727
  Transmission Date: 20120928
  Serious: Yes (Other)
  Sender: FDA-Public Use
  Company Number: JP-JNJFOC-20120604600

PATIENT
  Age: 93 Year
  Sex: Female

DRUGS (10)
  1. MEMANTINE HYDROCHLORIDE [Concomitant]
     Indication: DEMENTIA ALZHEIMER'S TYPE
     Route: 048
  2. GALANTAMINE HYDROBROMIDE [Suspect]
     Indication: DEMENTIA ALZHEIMER'S TYPE
     Route: 048
     Dates: start: 20110501
  3. FAMOTIDINE [Suspect]
     Indication: PRODUCT USED FOR UNKNOWN INDICATION
     Route: 065
     Dates: end: 20120606
  4. VESICARE [Suspect]
     Indication: PRODUCT USED FOR UNKNOWN INDICATION
     Route: 048
     Dates: end: 20120601
  5. ASPIRIN [Suspect]
     Indication: PRODUCT USED FOR UNKNOWN INDICATION
     Route: 048
     Dates: end: 20120601
  6. MONTELUKAST SODIUM [Concomitant]
     Route: 048
  7. CEFAZOLIN SODIUM [Concomitant]
     Route: 048
  8. UNKNOWN MEDICATION [Concomitant]
     Route: 065
  9. CADUET [Concomitant]
     Indication: HYPERTENSION
     Route: 048
  10. LIPITOR [Suspect]
     Indication: DYSLIPIDAEMIA
     Route: 048
     Dates: end: 20120606

REACTIONS (1)
  - PANCYTOPENIA [None]
